FAERS Safety Report 17524574 (Version 1)
Quarter: 2020Q1

REPORT INFORMATION
  Report Type: Spontaneous
  Country: US (occurrence: US)
  Receive Date: 20200310
  Receipt Date: 20200310
  Transmission Date: 20200409
  Serious: No
  Sender: FDA-Public Use
  Company Number: None

PATIENT
  Age: 46 Year
  Sex: Female
  Weight: 114.75 kg

DRUGS (16)
  1. NALTREXONE [Concomitant]
     Active Substance: NALTREXONE
  2. ZINC. [Concomitant]
     Active Substance: ZINC
  3. ADRENAL COMPLEX [Concomitant]
  4. DIGESTIVE ENZYMES [Concomitant]
     Active Substance: UNSPECIFIED INGREDIENT
  5. VITAMIN D [Concomitant]
     Active Substance: VITAMIN D NOS
  6. MAGNESIUM [Concomitant]
     Active Substance: MAGNESIUM
  7. PLAQUENIL [Concomitant]
     Active Substance: HYDROXYCHLOROQUINE SULFATE
  8. ZOLOFT [Concomitant]
     Active Substance: SERTRALINE HYDROCHLORIDE
  9. METFORMIN [Concomitant]
     Active Substance: METFORMIN HYDROCHLORIDE
  10. GABAPENTIN. [Concomitant]
     Active Substance: GABAPENTIN
  11. VITAMIN B12 [Concomitant]
     Active Substance: CYANOCOBALAMIN
  12. SLIPPERY ELM [Concomitant]
     Active Substance: ELM
  13. BENLYSTA [Suspect]
     Active Substance: BELIMUMAB
     Indication: AUTOIMMUNE DISORDER
     Dosage: ?          QUANTITY:1 INJECTION(S);OTHER FREQUENCY:ONE TIME WEEKLY;?
     Route: 058
     Dates: start: 20191221, end: 20200215
  14. ATENOLOL. [Concomitant]
     Active Substance: ATENOLOL
  15. TRIAMTERENE AND HYDROCHLOROTHIAZIDE [Concomitant]
     Active Substance: HYDROCHLOROTHIAZIDE\TRIAMTERENE
  16. PROBIOTIC [Concomitant]
     Active Substance: PROBIOTICS NOS

REACTIONS (3)
  - Headache [None]
  - Migraine [None]
  - Blood prolactin increased [None]

NARRATIVE: CASE EVENT DATE: 20200201
